FAERS Safety Report 9893793 (Version 1)
Quarter: 2014Q1

REPORT INFORMATION
  Report Type: Report from Study
  Country: US (occurrence: US)
  Receive Date: 20140213
  Receipt Date: 20140213
  Transmission Date: 20141002
  Serious: Yes (Other)
  Sender: FDA-Public Use
  Company Number: PHEH2014US002876

PATIENT
  Age: 51 Year
  Sex: Female
  Weight: 63.49 kg

DRUGS (12)
  1. ZOMETA [Suspect]
     Indication: PLASMA CELL MYELOMA
     Dosage: 4 MG, UNK
  2. FENTANYL [Concomitant]
     Dosage: 75 UG, HOUR
  3. TUMS [Concomitant]
     Dosage: 500 MG, UNK
  4. ZOFRAN [Concomitant]
     Dosage: 4 MG, UNK
  5. METHIMAZOLE [Concomitant]
     Dosage: 10 MG, UNK
  6. IBUPROFEN [Concomitant]
     Dosage: 200 MG, UNK
  7. LACTOSE FAST ACTING RELIEF [Concomitant]
     Dosage: 9000 U, UNK
  8. LIDODERM [Concomitant]
     Dosage: UNK UKN, UNK
  9. ASPIRIN BUFFERED [Concomitant]
     Dosage: 325 MG, UNK
  10. VITAMIN D [Concomitant]
     Dosage: 400 U, UNK
  11. TYLENOL [Concomitant]
     Dosage: 325 MG, UNK
  12. REVLIMID [Concomitant]
     Dosage: 25 MG, UNK

REACTIONS (1)
  - Cataract [Unknown]
